FAERS Safety Report 9690457 (Version 3)
Quarter: 2014Q1

REPORT INFORMATION
  Report Type: Spontaneous
  Country: US (occurrence: US)
  Receive Date: 20131115
  Receipt Date: 20140212
  Transmission Date: 20141002
  Serious: No
  Sender: FDA-Public Use
  Company Number: US-PFIZER INC-2013326079

PATIENT
  Sex: Female

DRUGS (10)
  1. LYRICA [Suspect]
     Dosage: 25 MG, 3X/DAY
     Dates: start: 20130314
  2. AMBIEN [Concomitant]
     Dosage: UNK
  3. LEXAPRO [Concomitant]
     Dosage: UNK
  4. PAXIL [Concomitant]
     Dosage: UNK
  5. LORTAB [Concomitant]
     Dosage: UNK
  6. CYMBALTA [Concomitant]
     Dosage: UNK
  7. XANAX [Concomitant]
     Dosage: UNK
  8. FLEXOR [Concomitant]
     Dosage: UNK
  9. CORTISONE [Concomitant]
     Dosage: UNK
  10. MELOXICAM [Concomitant]
     Dosage: UNK

REACTIONS (7)
  - Drug hypersensitivity [Unknown]
  - Oral mucosal exfoliation [Unknown]
  - Oral discomfort [Unknown]
  - Glossodynia [Unknown]
  - Tongue blistering [Unknown]
  - Oral mucosal blistering [Unknown]
  - Oral disorder [Unknown]
